FAERS Safety Report 8964793 (Version 3)
Quarter: 2013Q2

REPORT INFORMATION
  Report Type: Spontaneous
  Country: US (occurrence: US)
  Receive Date: 20121213
  Receipt Date: 20130520
  Transmission Date: 20140414
  Serious: Yes (Hospitalization)
  Sender: FDA-Public Use
  Company Number: US-009507513-1212USA004609

PATIENT
  Sex: Female
  Weight: 99.77 kg

DRUGS (2)
  1. NUVARING [Suspect]
     Indication: CONTRACEPTION
     Dosage: 1 DF, EVERY 28 DAYS
     Route: 067
     Dates: start: 20051105, end: 200603
  2. PAXIL [Concomitant]
     Indication: PREMENSTRUAL DYSPHORIC DISORDER
     Dosage: 20 MG, QD

REACTIONS (13)
  - Deep vein thrombosis [Recovering/Resolving]
  - Deep vein thrombosis [Unknown]
  - Gastrooesophageal reflux disease [Unknown]
  - Hypertension [Unknown]
  - Papilloma viral infection [Unknown]
  - Urinary tract infection [Recovered/Resolved]
  - Animal bite [Unknown]
  - Skin disorder [Unknown]
  - Cervical dysplasia [Unknown]
  - Colposcopy [Unknown]
  - Intra-uterine contraceptive device removal [Unknown]
  - Cervicitis [Unknown]
  - Metaplasia [Unknown]
